FAERS Safety Report 17858192 (Version 1)
Quarter: 2020Q2

REPORT INFORMATION
  Report Type: Report from Study
  Country: ES (occurrence: ES)
  Receive Date: 20200604
  Receipt Date: 20200604
  Transmission Date: 20200714
  Serious: Yes (Hospitalization)
  Sender: FDA-Public Use
  Company Number: ES-TEVA-2020-ES-1243732

PATIENT
  Age: 68 Year
  Sex: Female

DRUGS (5)
  1. ALOPURINOL (318A) [Concomitant]
     Active Substance: ALLOPURINOL
     Indication: GOUT
     Dosage: 300 MG
     Route: 048
     Dates: start: 20191009, end: 20191111
  2. IBUPROFENO (1769A) [Suspect]
     Active Substance: IBUPROFEN
     Indication: PAIN
     Dosage: 1.8 G
     Route: 048
     Dates: start: 20191009, end: 20191108
  3. COLCHICINA (142A) [Concomitant]
     Active Substance: COLCHICINE
     Indication: GOUT
     Dosage: 1 G
     Route: 048
     Dates: start: 20181209, end: 20191113
  4. METFORMINA (1359A) [Concomitant]
     Active Substance: METFORMIN HYDROCHLORIDE
     Indication: DIABETES MELLITUS
     Dosage: 1.7 G
     Route: 048
     Dates: start: 20180103, end: 20191111
  5. DIGOXINA (770A) [Concomitant]
     Active Substance: DIGOXIN
     Indication: ATRIAL FIBRILLATION
     Route: 048
     Dates: start: 20180711, end: 20191111

REACTIONS (2)
  - Chronic kidney disease [Recovered/Resolved]
  - Cardiac failure [Recovered/Resolved]

NARRATIVE: CASE EVENT DATE: 20191109
